FAERS Safety Report 8408141-9 (Version None)
Quarter: 2012Q2

REPORT INFORMATION
  Report Type: 
  Country: None (occurrence: None)
  Receive Date: 20120604
  Receipt Date: 20120531
  Transmission Date: 20120825
  Serious: Yes (Death)
  Sender: FDA-Public Use
  Company Number: US-PFIZER INC-K201100008

PATIENT
  Age: 37 Year
  Sex: Female

DRUGS (13)
  1. METFORMIN HCL [Suspect]
     Indication: COMPLETED SUICIDE
     Dosage: UNK
     Route: 048
  2. CLONAZEPAM [Suspect]
     Indication: COMPLETED SUICIDE
     Dosage: UNK
     Route: 048
  3. ARIPIPRAZOLE [Suspect]
     Indication: COMPLETED SUICIDE
     Dosage: UNK
     Route: 048
  4. PREDNISONE [Suspect]
     Indication: COMPLETED SUICIDE
     Dosage: UNK
     Route: 048
  5. GEMFIBROZIL [Suspect]
     Indication: COMPLETED SUICIDE
     Dosage: UNK
     Route: 048
  6. LEVOXYL [Suspect]
     Indication: COMPLETED SUICIDE
     Dosage: UNK
     Route: 048
  7. SIMVASTATIN [Suspect]
     Indication: COMPLETED SUICIDE
     Dosage: UNK
     Route: 048
  8. DULOXETIME HYDROCHLORIDE [Suspect]
     Indication: COMPLETED SUICIDE
     Dosage: UNK
     Route: 048
  9. RANITIDINE [Suspect]
     Indication: COMPLETED SUICIDE
     Dosage: UNK
     Route: 048
  10. ETHANOL [Suspect]
     Indication: COMPLETED SUICIDE
     Dosage: UNK
     Route: 048
  11. BUPROPION HCL [Suspect]
     Indication: COMPLETED SUICIDE
     Dosage: UNK
     Route: 048
  12. TOPIRAMATE [Suspect]
     Indication: COMPLETED SUICIDE
     Dosage: UNK
     Route: 048
  13. OXCARBAZEPINE [Suspect]
     Indication: COMPLETED SUICIDE
     Dosage: UNK
     Route: 048

REACTIONS (2)
  - CARDIO-RESPIRATORY ARREST [None]
  - COMPLETED SUICIDE [None]
